FAERS Safety Report 13049452 (Version 1)
Quarter: 2016Q4

REPORT INFORMATION
  Report Type: Spontaneous
  Country: FR (occurrence: FR)
  Receive Date: 20161221
  Receipt Date: 20161221
  Transmission Date: 20170207
  Serious: Yes (Hospitalization, Other)
  Sender: FDA-Public Use
  Company Number: FR-BRISTOL-MYERS SQUIBB COMPANY-BMS-2016-107540

PATIENT
  Age: 73 Year
  Sex: Female

DRUGS (1)
  1. OPDIVO [Suspect]
     Active Substance: NIVOLUMAB
     Indication: LUNG NEOPLASM MALIGNANT
     Dosage: 120 MG, UNK
     Route: 042
     Dates: start: 20150818

REACTIONS (7)
  - Psoriatic arthropathy [Not Recovered/Not Resolved]
  - Toxic skin eruption [Unknown]
  - Pruritus [Unknown]
  - Dry mouth [Unknown]
  - Pyrexia [Unknown]
  - Erythema [Unknown]
  - Eczema [Not Recovered/Not Resolved]

NARRATIVE: CASE EVENT DATE: 20151014
